FAERS Safety Report 7075533-2 (Version None)
Quarter: 2010Q4

REPORT INFORMATION
  Report Type: 
  Country: None (occurrence: None)
  Receive Date: 20101030
  Receipt Date: 20101019
  Transmission Date: 20110411
  Serious: No
  Sender: FDA-Public Use
  Company Number: US-WYE-H17937110

PATIENT
  Sex: Female

DRUGS (7)
  1. PRISTIQ [Suspect]
     Indication: DEPRESSION
     Dates: start: 20100801, end: 20100913
  2. PRISTIQ [Suspect]
     Dates: start: 20100914, end: 20100929
  3. CAMPRAL [Concomitant]
  4. VISTARIL [Concomitant]
  5. BUSPAR [Concomitant]
  6. WELLBUTRIN XL [Concomitant]
  7. ABILIFY [Concomitant]

REACTIONS (1)
  - BLISTER [None]
